FAERS Safety Report 17964994 (Version 11)
Quarter: 2025Q3

REPORT INFORMATION
  Report Type: Report from Study
  Country: US (occurrence: US)
  Receive Date: 20200630
  Receipt Date: 20250808
  Transmission Date: 20251021
  Serious: Yes (Other)
  Sender: TAKEDA
  Company Number: US-SHIRE-US202020935

PATIENT
  Age: 37 Year
  Sex: Male

DRUGS (10)
  1. ADVATE [Suspect]
     Active Substance: ANTIHEMOPHILIC FACTOR, HUMAN RECOMBINANT
     Indication: Haemorrhage
  2. ADVATE [Suspect]
     Active Substance: ANTIHEMOPHILIC FACTOR, HUMAN RECOMBINANT
     Dosage: 3000 INTERNATIONAL UNIT, QD
  3. ADVATE [Suspect]
     Active Substance: ANTIHEMOPHILIC FACTOR, HUMAN RECOMBINANT
  4. ADVATE [Suspect]
     Active Substance: ANTIHEMOPHILIC FACTOR, HUMAN RECOMBINANT
  5. ADVATE [Suspect]
     Active Substance: ANTIHEMOPHILIC FACTOR, HUMAN RECOMBINANT
  6. ADVATE [Suspect]
     Active Substance: ANTIHEMOPHILIC FACTOR, HUMAN RECOMBINANT
  7. ADVATE [Suspect]
     Active Substance: ANTIHEMOPHILIC FACTOR, HUMAN RECOMBINANT
  8. ADVATE [Suspect]
     Active Substance: ANTIHEMOPHILIC FACTOR, HUMAN RECOMBINANT
  9. ADVATE [Suspect]
     Active Substance: ANTIHEMOPHILIC FACTOR, HUMAN RECOMBINANT
  10. ADVATE [Suspect]
     Active Substance: ANTIHEMOPHILIC FACTOR, HUMAN RECOMBINANT

REACTIONS (15)
  - Nephrolithiasis [Recovered/Resolved]
  - Haemorrhage [Not Recovered/Not Resolved]
  - Muscle haemorrhage [Unknown]
  - Post procedural haemorrhage [Not Recovered/Not Resolved]
  - Haemarthrosis [Recovered/Resolved]
  - Pharyngeal haemorrhage [Unknown]
  - Lip haemorrhage [Unknown]
  - Product use issue [Unknown]
  - Neck pain [Unknown]
  - Nerve compression [Unknown]
  - Ligament sprain [Recovered/Resolved]
  - Incorrect dose administered [Unknown]
  - Inappropriate schedule of product administration [Unknown]
  - Arthralgia [Unknown]
  - Expired product administered [Not Recovered/Not Resolved]

NARRATIVE: CASE EVENT DATE: 20200622
